FAERS Safety Report 6009162-6 (Version None)
Quarter: 2008Q4

REPORT INFORMATION
  Report Type: 
  Country: None (occurrence: None)
  Receive Date: 20081216
  Receipt Date: 20081204
  Transmission Date: 20090506
  Serious: Yes (Hospitalization)
  Sender: FDA-Public Use
  Company Number: 236510J08USA

PATIENT
  Age: 27 Year
  Sex: Female
  Weight: 84 kg

DRUGS (3)
  1. REBIF [Suspect]
     Indication: MULTIPLE SCLEROSIS
     Dosage: 44 MCG, 3 IN 1 WEEKS, SUBCUTANEOUS, 22 MCG, SUBCUTANEOUS
     Route: 058
     Dates: start: 20070823, end: 20080701
  2. REBIF [Suspect]
     Indication: MULTIPLE SCLEROSIS
     Dosage: 44 MCG, 3 IN 1 WEEKS, SUBCUTANEOUS, 22 MCG, SUBCUTANEOUS
     Route: 058
     Dates: start: 20081020
  3. ZANAFLEX [Concomitant]

REACTIONS (13)
  - ASTHENIA [None]
  - CONDITION AGGRAVATED [None]
  - DIPLOPIA [None]
  - FACIAL PALSY [None]
  - FEELING ABNORMAL [None]
  - INJECTION SITE HAEMATOMA [None]
  - INJECTION SITE PAIN [None]
  - MULTIPLE SCLEROSIS [None]
  - MULTIPLE SCLEROSIS RELAPSE [None]
  - PHARYNGITIS STREPTOCOCCAL [None]
  - TREMOR [None]
  - VIRAL INFECTION [None]
  - VOMITING [None]
